FAERS Safety Report 24120720 (Version 2)
Quarter: 2024Q3

REPORT INFORMATION
  Report Type: Report from Study
  Country: MX (occurrence: MX)
  Receive Date: 20240722
  Receipt Date: 20240730
  Transmission Date: 20241017
  Serious: Yes (Death, Other)
  Sender: NOVARTIS
  Company Number: MX-002147023-NVSC2024MX127457

PATIENT
  Sex: Male
  Weight: 53 kg

DRUGS (8)
  1. TASIGNA [Suspect]
     Active Substance: NILOTINIB
     Indication: Chronic myeloid leukaemia
     Dosage: 4 DOSAGE FORM, (ALL TOGETHER IN THE MORNING)
     Route: 048
     Dates: start: 2014
  2. TASIGNA [Suspect]
     Active Substance: NILOTINIB
     Dosage: UNK, BID (IN THE MORNING AND IN THE AFTERNOON/TWICE A DAY)
     Route: 048
     Dates: start: 2015
  3. TASIGNA [Suspect]
     Active Substance: NILOTINIB
     Dosage: 400 MG, 2 CAPSULES OF TASIGNA IN THE MORNING AND 2 CAPSULES OF TASIGNA 200 MG IN THE AFTERNOON
     Route: 065
     Dates: start: 2015
  4. TASIGNA [Suspect]
     Active Substance: NILOTINIB
     Dosage: 4 DOSAGE FORM (4 CAPSULES OF 200 MG), QD
     Route: 048
  5. GLYBURIDE [Concomitant]
     Active Substance: GLYBURIDE
     Indication: Diabetes mellitus
     Dosage: 2 DOSAGE FORM, BID (HE TAKES 1 AT LUNCH AND 1 IN THE MEAL, 10 YEARS AGO)
     Route: 065
  6. GLYBURIDE [Concomitant]
     Active Substance: GLYBURIDE
     Dosage: UNK, (AT NOON)
     Route: 065
  7. METFORMIN [Concomitant]
     Active Substance: METFORMIN HYDROCHLORIDE
     Indication: Diabetes mellitus
     Dosage: 2 DOSAGE FORM, (AT LUNCH AND IN THE MEAL, 10 YEARS AGO)
     Route: 065
  8. METFORMIN [Concomitant]
     Active Substance: METFORMIN HYDROCHLORIDE
     Dosage: UNK, (IN THE MORNING)
     Route: 065

REACTIONS (6)
  - Infarction [Fatal]
  - Hepatic cirrhosis [Unknown]
  - Gastritis [Unknown]
  - Weight decreased [Unknown]
  - Hepatic function abnormal [Unknown]
  - Inappropriate schedule of product administration [Unknown]

NARRATIVE: CASE EVENT DATE: 20240101
